FAERS Safety Report 15423751 (Version 1)
Quarter: 2018Q3

REPORT INFORMATION
  Report Type: Spontaneous
  Country: US (occurrence: US)
  Receive Date: 20180920
  Receipt Date: 20180920
  Transmission Date: 20181010
  Serious: Yes (Other)
  Sender: FDA-Public Use
  Company Number: None

PATIENT
  Age: 47 Year
  Sex: Female
  Weight: 96.75 kg

DRUGS (4)
  1. LEVOTHYROXINE 137 MG [Concomitant]
  2. RABEPRAZOLE [Suspect]
     Active Substance: RABEPRAZOLE
     Indication: GASTROOESOPHAGEAL REFLUX DISEASE
     Dosage: ?          QUANTITY:1 CAPSULE(S);?
     Route: 048
  3. RABEPRAZOLE [Suspect]
     Active Substance: RABEPRAZOLE
     Indication: CHEST PAIN
     Dosage: ?          QUANTITY:1 CAPSULE(S);?
     Route: 048
  4. LORATIDINE 10 MG [Concomitant]

REACTIONS (5)
  - Renal pain [None]
  - Back pain [None]
  - Pollakiuria [None]
  - Urinary tract pain [None]
  - Micturition urgency [None]

NARRATIVE: CASE EVENT DATE: 20180920
